FAERS Safety Report 5283407-2 (Version None)
Quarter: 2007Q1

REPORT INFORMATION
  Report Type: 
  Country: None (occurrence: None)
  Receive Date: 20061226
  Receipt Date: 20061120
  Transmission Date: 20070707
  Serious: No
  Sender: FDA-Public Use
  Company Number: 2006PV025575

PATIENT
  Age: 62 Year
  Sex: Female
  Weight: 106.1417 kg

DRUGS (6)
  1. SYMLIN [Suspect]
     Indication: DIABETES MELLITUS NON-INSULIN-DEPENDENT
     Dosage: SEE IMAGE
     Route: 058
     Dates: start: 20060922, end: 20060101
  2. SYMLIN [Suspect]
     Indication: DIABETES MELLITUS NON-INSULIN-DEPENDENT
     Dosage: SEE IMAGE
     Route: 058
     Dates: start: 20061101
  3. METFORMIN [Concomitant]
  4. LANTUS [Concomitant]
  5. ACTOS [Concomitant]
  6. BYETTA [Concomitant]

REACTIONS (4)
  - BLOOD GLUCOSE INCREASED [None]
  - INJECTION SITE PAIN [None]
  - STRESS [None]
  - WEIGHT DECREASED [None]
